FAERS Safety Report 10539205 (Version 3)
Quarter: 2015Q2

REPORT INFORMATION
  Report Type: Spontaneous
  Country: JP (occurrence: JP)
  Receive Date: 20141023
  Receipt Date: 20150527
  Transmission Date: 20150821
  Serious: Yes (Hospitalization)
  Sender: FDA-Public Use
  Company Number: JP-009507513-1410JPN009668

PATIENT
  Age: 20 Year
  Sex: Male
  Weight: 55 kg

DRUGS (9)
  1. PEGINTRON [Suspect]
     Active Substance: PEGINTERFERON ALFA-2B
     Dosage: 100 MICROGRAM, QD
     Route: 058
     Dates: start: 20111108, end: 20111115
  2. REBETOL [Suspect]
     Active Substance: RIBAVIRIN
     Indication: CHRONIC HEPATITIS C
     Dosage: 600 MG, QD
     Route: 048
     Dates: start: 20110907, end: 20111025
  3. PANCRELIPASE. [Suspect]
     Active Substance: PANCRELIPASE
     Indication: DECREASED APPETITE
     Dosage: 450 MG, QD
     Route: 048
     Dates: start: 20111117, end: 20111225
  4. AMOBAN [Suspect]
     Active Substance: ZOPICLONE
     Indication: INSOMNIA
     Dosage: 7.5 G, QD
     Route: 048
     Dates: start: 20111117
  5. FERON [Suspect]
     Active Substance: INTERFERON BETA
     Indication: HEPATITIS C
     Dosage: 6 MILLION-BILLION UNIT, QD
     Route: 042
     Dates: start: 20111029, end: 20111107
  6. SHO-SEIRYU-TO [Suspect]
     Active Substance: HERBALS
     Indication: PROPHYLAXIS
     Dosage: 3 G, BID
     Route: 048
     Dates: start: 20111029
  7. PEGINTRON [Suspect]
     Active Substance: PEGINTERFERON ALFA-2B
     Indication: CHRONIC HEPATITIS C
     Dosage: 100 MICROGRAM, QD
     Route: 058
     Dates: start: 20110907, end: 20111025
  8. REBETOL [Suspect]
     Active Substance: RIBAVIRIN
     Dosage: 600 MG, QD
     Route: 048
     Dates: start: 20111108, end: 20111115
  9. FERON [Suspect]
     Active Substance: INTERFERON BETA
     Dosage: DAILY DOSAGE UNKNOWN
     Route: 042

REACTIONS (5)
  - Decreased appetite [Recovered/Resolved]
  - Insomnia [Not Recovered/Not Resolved]
  - Irritability [Not Recovered/Not Resolved]
  - Delusion [Unknown]
  - Hallucination [Unknown]

NARRATIVE: CASE EVENT DATE: 2011
